FAERS Safety Report 21120334 (Version 1)
Quarter: 2022Q3

REPORT INFORMATION
  Report Type: Spontaneous
  Country: US (occurrence: None)
  Receive Date: 20220722
  Receipt Date: 20220722
  Transmission Date: 20221027
  Serious: Yes (Hospitalization)
  Sender: FDA-Public Use
  Company Number: None

PATIENT
  Age: 76 Year
  Sex: Male
  Weight: 107.4 kg

DRUGS (1)
  1. ABECMA [Suspect]
     Active Substance: IDECABTAGENE VICLEUCEL
     Indication: Plasma cell myeloma
     Dosage: FREQUENCY : ONCE;?
     Route: 042
     Dates: start: 20220521, end: 20220521

REACTIONS (2)
  - Cytokine release syndrome [None]
  - Neurotoxicity [None]

NARRATIVE: CASE EVENT DATE: 20220521
